FAERS Safety Report 5706438-4 (Version None)
Quarter: 2008Q2

REPORT INFORMATION
  Report Type: 
  Country: None (occurrence: None)
  Receive Date: 20080414
  Receipt Date: 20080404
  Transmission Date: 20081010
  Serious: Yes (Hospitalization, Disabling)
  Sender: FDA-Public Use
  Company Number: 2008AL002086

PATIENT
  Sex: Male

DRUGS (1)
  1. PHENYTOIN [Suspect]
     Indication: CONVULSION
     Dates: start: 20000929

REACTIONS (14)
  - ACUTE GENERALISED EXANTHEMATOUS PUSTULOSIS [None]
  - ANHEDONIA [None]
  - ANXIETY [None]
  - BLINDNESS [None]
  - BLISTER [None]
  - COMA [None]
  - COUGH [None]
  - EMOTIONAL DISTRESS [None]
  - EOSINOPHILIA [None]
  - ERYTHEMA MULTIFORME [None]
  - PYREXIA [None]
  - SCAR [None]
  - STEVENS-JOHNSON SYNDROME [None]
  - TOXIC EPIDERMAL NECROLYSIS [None]
